FAERS Safety Report 10229416 (Version 11)
Quarter: 2014Q3

REPORT INFORMATION
  Report Type: Report from Study
  Country: IT (occurrence: IT)
  Receive Date: 20140611
  Receipt Date: 20140905
  Transmission Date: 20150326
  Serious: Yes (Death, Hospitalization)
  Sender: FDA-Public Use
  Company Number: IT-ROCHE-1416194

PATIENT
  Age: 72 Year
  Sex: Male
  Weight: 78 kg

DRUGS (13)
  1. DUTASTERIDE [Concomitant]
     Active Substance: DUTASTERIDE
     Route: 048
     Dates: start: 20130130
  2. ALLOPURINOL. [Concomitant]
     Active Substance: ALLOPURINOL
     Indication: PROPHYLAXIS
     Route: 048
     Dates: start: 20140414, end: 20140423
  3. ALLOPURINOL. [Concomitant]
     Active Substance: ALLOPURINOL
     Route: 048
     Dates: start: 20140424
  4. OBINUTUZUMAB [Suspect]
     Active Substance: OBINUTUZUMAB
     Indication: CHRONIC LYMPHOCYTIC LEUKAEMIA
     Dosage: 1000 MG ON 14-MAY-2014 WHICH WAS THE LAST DOSE PRIOR TO ONSET OF SERIOUS ADVERSE EVENT.?1000 MG IV O
     Route: 042
     Dates: start: 20140416
  5. SULFAMETOXAZOL [Concomitant]
     Indication: PROPHYLAXIS
     Route: 048
     Dates: start: 20140426
  6. OBINUTUZUMAB [Suspect]
     Active Substance: OBINUTUZUMAB
     Dosage: C1D2, DOSE: 975 MG
     Route: 042
     Dates: start: 20140417
  7. TRIMETOPRIM [Concomitant]
     Active Substance: TRIMETHOPRIM
     Route: 048
     Dates: start: 20140426
  8. BENDAMUSTINE [Suspect]
     Active Substance: BENDAMUSTINE
     Indication: CHRONIC LYMPHOCYTIC LEUKAEMIA
     Dosage: C1D2, LAST DOSE PRIOR TO ONSET OF SERIOUS ADVERSE EVENT WAS RECEIVED ON 14/MAY/2014.
     Route: 042
     Dates: start: 20140417
  9. ENALAPRIL [Concomitant]
     Active Substance: ENALAPRIL
     Route: 048
     Dates: start: 2012
  10. BENDAMUSTINE [Suspect]
     Active Substance: BENDAMUSTINE
     Route: 042
     Dates: start: 20140416
  11. IDROCLOROTIAZIDE [Concomitant]
     Active Substance: HYDROCHLOROTHIAZIDE
     Route: 048
     Dates: start: 2012
  12. OBINUTUZUMAB [Suspect]
     Active Substance: OBINUTUZUMAB
     Dosage: C1D8, DOSE: 975 MG
     Route: 042
     Dates: start: 20140424
  13. PANTOPRAZOLE [Concomitant]
     Active Substance: PANTOPRAZOLE SODIUM
     Route: 048
     Dates: start: 2012

REACTIONS (2)
  - Acute hepatic failure [Fatal]
  - Pneumonitis [Not Recovered/Not Resolved]

NARRATIVE: CASE EVENT DATE: 20140606
